FAERS Safety Report 8421580 (Version 2)
Quarter: 2012Q4

REPORT INFORMATION
  Report Type: 
  Country: US (occurrence: US)
  Receive Date: 20120222
  Receipt Date: 20121026
  Transmission Date: 20130627
  Serious: Yes (Other)
  Sender: FDA-Public Use
  Company Number: US-ASTRAZENECA-2012SE10300

PATIENT
  Age: 81 Year
  Sex: Male

DRUGS (1)
  1. NEXIUM [Suspect]
     Route: 048

REACTIONS (5)
  - Parkinson^s disease [Unknown]
  - CSF test abnormal [Unknown]
  - Functional gastrointestinal disorder [Unknown]
  - Arthritis [Unknown]
  - Kyphosis [Unknown]
